FAERS Safety Report 8472591-5 (Version None)
Quarter: 2012Q2

REPORT INFORMATION
  Report Type: 
  Country: None (occurrence: None)
  Receive Date: 20120627
  Receipt Date: 20110920
  Transmission Date: 20120825
  Serious: No
  Sender: FDA-Public Use
  Company Number: US-AMGEN-USASP2011049228

PATIENT
  Age: 75 Year
  Sex: Male
  Weight: 68.027 kg

DRUGS (4)
  1. COREG [Concomitant]
     Indication: HYPERTENSION
     Dosage: 3.125 MG, TID
     Route: 048
  2. BENICAR [Concomitant]
     Indication: HYPERTENSION
     Dosage: 5 MG, QD
     Route: 048
  3. PROCRIT [Suspect]
     Indication: ANAEMIA
     Dosage: 10000 IU, UNK
     Route: 058
  4. NORVASC [Concomitant]
     Indication: HYPERTENSION
     Dosage: 50 MG, TID
     Route: 048

REACTIONS (1)
  - HAEMOGLOBIN DECREASED [None]
